FAERS Safety Report 8513694 (Version 4)
Quarter: 2013Q1

REPORT INFORMATION
  Report Type: Spontaneous
  Country: IT (occurrence: None)
  Receive Date: 20120410
  Receipt Date: 20121210
  Transmission Date: 20140127
  Serious: Yes (Life-Threatening, Hospitalization, Other)
  Sender: FDA-Public Use
  Company Number: MC201200192

PATIENT
  Age: 69 Year
  Sex: Male
  Weight: 63 kg

DRUGS (5)
  1. ANGIOMAX [Suspect]
     Indication: PERCUTANEOUS CORONARY INTERVENTION
     Dosage: BOLUS
     Route: 040
     Dates: start: 20120327, end: 20120327
  2. ASA (ASA) [Concomitant]
  3. ATORVASTATIN CALCIUM [Concomitant]
  4. PRASUGREL (PRASUGREL) [Concomitant]
  5. HYPOGLYCEMIC ORAL DRUG [Concomitant]

REACTIONS (6)
  - Myocardial infarction [None]
  - Electrocardiogram ST segment elevation [None]
  - Angina pectoris [None]
  - Thrombosis in device [None]
  - Drug ineffective [None]
  - Product quality issue [None]
